FAERS Safety Report 4293203-0 (Version None)
Quarter: 2004Q1

REPORT INFORMATION
  Report Type: 
  Country: None (occurrence: None)
  Receive Date: 20040126
  Receipt Date: 20031105
  Transmission Date: 20041129
  Serious: No
  Sender: FDA-Public Use
  Company Number: USA031151843

PATIENT
  Age: 87 Year
  Sex: Female
  Weight: 51 kg

DRUGS (5)
  1. FORTEO [Suspect]
     Indication: BONE DISORDER
     Dates: start: 20030701
  2. LOTREL [Concomitant]
  3. SALSALATE [Concomitant]
  4. TYLENOL [Concomitant]
  5. IBUPROFEN [Concomitant]

REACTIONS (2)
  - ARTHRITIS [None]
  - HYPOTENSION [None]
